FAERS Safety Report 11850460 (Version 1)
Quarter: 2015Q4

REPORT INFORMATION
  Report Type: Spontaneous
  Country: US (occurrence: US)
  Receive Date: 20151218
  Receipt Date: 20151218
  Transmission Date: 20160305
  Serious: No
  Sender: FDA-Public Use
  Company Number: US-JNJFOC-20151121504

PATIENT
  Sex: Male
  Weight: 70.31 kg

DRUGS (2)
  1. ZYRTEC-D [Suspect]
     Active Substance: CETIRIZINE HYDROCHLORIDE\PSEUDOEPHEDRINE HYDROCHLORIDE
     Indication: MULTIPLE ALLERGIES
     Dosage: THE CONSUMER DID SAY THERE ARE TIMES HE DIDN^T TAKE IT EVERY DAY.SOMETIMES ONLY TWICE IN A WEEK
     Route: 048
  2. ZYRTEC-D [Suspect]
     Active Substance: CETIRIZINE HYDROCHLORIDE\PSEUDOEPHEDRINE HYDROCHLORIDE
     Indication: SINUS CONGESTION
     Dosage: THE CONSUMER DID SAY THERE ARE TIMES HE DIDN^T TAKE IT EVERY DAY.SOMETIMES ONLY TWICE IN A WEEK
     Route: 048

REACTIONS (1)
  - Inappropriate schedule of drug administration [Unknown]
